FAERS Safety Report 8452655-2 (Version None)
Quarter: 2012Q2

REPORT INFORMATION
  Report Type: 
  Country: None (occurrence: None)
  Receive Date: 20120620
  Receipt Date: 20120613
  Transmission Date: 20120825
  Serious: Yes (Hospitalization, Other)
  Sender: FDA-Public Use
  Company Number: PHEH2012US011943

PATIENT
  Sex: Female
  Weight: 43.537 kg

DRUGS (1)
  1. AFINITOR [Suspect]

REACTIONS (4)
  - PANCREATIC NEUROENDOCRINE TUMOUR METASTATIC [None]
  - RENAL FAILURE [None]
  - METASTASES TO LIVER [None]
  - ANAEMIA [None]
